FAERS Safety Report 6187352-X (Version None)
Quarter: 2009Q2

REPORT INFORMATION
  Report Type: 
  Country: None (occurrence: None)
  Receive Date: 20090512
  Receipt Date: 20090508
  Transmission Date: 20091009
  Serious: Yes (Hospitalization)
  Sender: FDA-Public Use
  Company Number: A0764411A

PATIENT
  Age: 28 Year
  Sex: Female
  Weight: 133.4 kg

DRUGS (5)
  1. LAPATINIB [Suspect]
     Dosage: 1000MG PER DAY
     Route: 048
     Dates: start: 20081224
  2. TRASTUZUMAB [Suspect]
     Dosage: 4MGK WEEKLY
     Route: 042
     Dates: start: 20081223
  3. FLUOROURACIL [Suspect]
     Dosage: 500MGM2 CYCLIC
     Route: 042
     Dates: start: 20090107
  4. EPIRUBICIN [Suspect]
     Dosage: 75MGM2 CYCLIC
     Route: 042
     Dates: start: 20090107
  5. CYCLOPHOSPHAMIDE [Suspect]
     Dosage: 500MGM2 CYCLIC
     Route: 042
     Dates: start: 20090107

REACTIONS (1)
  - FEBRILE NEUTROPENIA [None]
